FAERS Safety Report 19858355 (Version 1)
Quarter: 2021Q3

REPORT INFORMATION
  Report Type: Spontaneous
  Country: US (occurrence: US)
  Receive Date: 20210920
  Receipt Date: 20210920
  Transmission Date: 20211014
  Serious: No
  Sender: FDA-Public Use
  Company Number: US-GALDERMA-US2021015670

PATIENT

DRUGS (4)
  1. PROACTIV MD ADAPALENE ACNE TREATMENT [Suspect]
     Active Substance: ADAPALENE
     Indication: ACNE
     Dosage: 1 DOSAGE FORM, QD, DAILY
     Route: 061
     Dates: start: 20210702, end: 20210811
  2. DIFFERIN (ADAPALENE) SOLUTION, 0.1% [Concomitant]
     Indication: PRODUCT USED FOR UNKNOWN INDICATION
  3. PROACTIV MD ULTRA GENTLE CLEANSER [Concomitant]
     Indication: ACNE
     Dosage: 1 DOSAGE FORM, QD, DAILY
     Route: 061
     Dates: start: 20210702, end: 20210811
  4. PROACTIV MD ULTRA HYDRATING MOISTURIZER [Concomitant]
     Indication: ACNE
     Dosage: 1 DOSAGE FORM, QD, DAILY
     Route: 061
     Dates: start: 20210702, end: 20210811

REACTIONS (6)
  - Dry skin [Recovered/Resolved]
  - Rash erythematous [Recovered/Resolved]
  - Skin swelling [Recovered/Resolved]
  - Erythema [Recovered/Resolved]
  - Chemical burn of skin [Recovered/Resolved]
  - Sensitive skin [Recovered/Resolved]

NARRATIVE: CASE EVENT DATE: 20210811
